FAERS Safety Report 13914762 (Version 7)
Quarter: 2018Q3

REPORT INFORMATION
  Report Type: Report from Study
  Country: JP (occurrence: JP)
  Receive Date: 20170828
  Receipt Date: 20180803
  Transmission Date: 20181010
  Serious: Yes (Death, Hospitalization, Other)
  Sender: FDA-Public Use
  Company Number: JP-TAKEDA-2017TJP016948AA

PATIENT
  Age: 72 Year
  Sex: Female
  Weight: 61 kg

DRUGS (12)
  1. IXAZOMIB [Suspect]
     Active Substance: IXAZOMIB
     Indication: PLASMA CELL MYELOMA
     Dosage: 2.3 MG, 1/WEEK
     Route: 048
     Dates: start: 20170711, end: 20170725
  2. BAKTAR [Concomitant]
     Active Substance: SULFAMETHOXAZOLE\TRIMETHOPRIM
     Indication: PROPHYLAXIS
     Dosage: 0.5 G, 3/WEEK
     Route: 048
     Dates: start: 20141028, end: 20170906
  3. DEXAMETHASONE. [Suspect]
     Active Substance: DEXAMETHASONE
     Indication: PLASMA CELL MYELOMA
     Dosage: 4 MG, 1/WEEK
     Route: 048
     Dates: start: 20170711, end: 20170801
  4. MAGMITT [Concomitant]
     Active Substance: MAGNESIUM OXIDE
     Dosage: 660 MG, TID
     Route: 048
     Dates: start: 20170710, end: 20170801
  5. PRIMPERAN [Concomitant]
     Active Substance: METOCLOPRAMIDE HYDROCHLORIDE
     Dosage: 5 MG, TID
     Route: 048
     Dates: start: 20170710, end: 20170913
  6. VALTREX [Concomitant]
     Active Substance: VALACYCLOVIR HYDROCHLORIDE
     Indication: PROPHYLAXIS
     Dosage: 500 MG, 3/WEEK
     Route: 048
     Dates: start: 20141028, end: 20170906
  7. DEXAMETHASONE. [Suspect]
     Active Substance: DEXAMETHASONE
     Dosage: 8 MG, 1/WEEK
     Route: 048
     Dates: start: 20170815, end: 20170905
  8. IXAZOMIB [Suspect]
     Active Substance: IXAZOMIB
     Dosage: 2.3 MG, 1/WEEK
     Route: 048
     Dates: start: 20170815, end: 20170829
  9. REVLIMID [Suspect]
     Active Substance: LENALIDOMIDE
     Indication: PLASMA CELL MYELOMA
     Dosage: 5 MG, QD
     Route: 048
     Dates: start: 20170711, end: 20170731
  10. METHYCOBAL [Concomitant]
     Active Substance: METHYLCOBALAMIN
     Dosage: 500 UG, TID
     Route: 048
     Dates: start: 20160418, end: 20170801
  11. FEBURIC [Concomitant]
     Active Substance: FEBUXOSTAT
     Dosage: 10 MG, QD
     Route: 048
     Dates: start: 20170724, end: 20170824
  12. REVLIMID [Suspect]
     Active Substance: LENALIDOMIDE
     Dosage: 5 MG, QD
     Route: 048
     Dates: start: 20170815, end: 20170904

REACTIONS (7)
  - Condition aggravated [Fatal]
  - Thrombocytopenia [Recovered/Resolved]
  - Bacterial infection [Recovering/Resolving]
  - Cardiac amyloidosis [Fatal]
  - Nausea [Not Recovered/Not Resolved]
  - Vomiting [Not Recovered/Not Resolved]
  - Septic shock [Fatal]

NARRATIVE: CASE EVENT DATE: 20170724
